FAERS Safety Report 9773169 (Version 1)
Quarter: 2013Q4

REPORT INFORMATION
  Report Type: Spontaneous
  Country: US (occurrence: None)
  Receive Date: 20131217
  Receipt Date: 20131217
  Transmission Date: 20140711
  Serious: Yes (Hospitalization, Other)
  Sender: FDA-Public Use
  Company Number: SYM-2013-14036

PATIENT
  Age: 53 Year
  Sex: Female

DRUGS (1)
  1. XENAZINE [Suspect]
     Indication: CHOREA
     Route: 048
     Dates: start: 20130826

REACTIONS (1)
  - Drug dose omission [None]
